FAERS Safety Report 6032202-5 (Version None)
Quarter: 2009Q1

REPORT INFORMATION
  Report Type: 
  Country: None (occurrence: None)
  Receive Date: 20090108
  Receipt Date: 20081229
  Transmission Date: 20090719
  Serious: Yes (Disabling, Other)
  Sender: FDA-Public Use
  Company Number: HR-PFIZER INC-2008096808

PATIENT

DRUGS (4)
  1. LYRICA [Suspect]
     Route: 048
     Dates: start: 20081027, end: 20081027
  2. MIXTARD HUMAN 70/30 [Concomitant]
     Route: 058
  3. ALL OTHER THERAPEUTIC PRODUCTS [Concomitant]
     Route: 048
  4. EUTHYROX [Concomitant]
     Route: 048

REACTIONS (6)
  - FALL [None]
  - HALLUCINATION [None]
  - PARALYSIS [None]
  - RIB FRACTURE [None]
  - VERTIGO [None]
  - VOMITING [None]
